FAERS Safety Report 5382997-9 (Version None)
Quarter: 2007Q3

REPORT INFORMATION
  Report Type: 
  Country: None (occurrence: None)
  Receive Date: 20070710
  Receipt Date: 20070705
  Transmission Date: 20080115
  Serious: Yes (Hospitalization)
  Sender: FDA-Public Use
  Company Number: B0478293A

PATIENT
  Age: 3 Year
  Sex: Male

DRUGS (1)
  1. ZINACEF [Suspect]
     Dosage: 1.6G UNKNOWN
     Route: 042
     Dates: start: 20070521, end: 20070523

REACTIONS (1)
  - DERMATITIS ALLERGIC [None]
